FAERS Safety Report 20419077 (Version 1)
Quarter: 2022Q1

REPORT INFORMATION
  Report Type: Report from Study
  Country: IT (occurrence: IT)
  Receive Date: 20220203
  Receipt Date: 20220203
  Transmission Date: 20220424
  Serious: Yes (Hospitalization)
  Sender: FDA-Public Use
  Company Number: IT-JNJFOC-20220152295

PATIENT

DRUGS (4)
  1. CANAGLIFLOZIN [Suspect]
     Active Substance: CANAGLIFLOZIN
     Indication: Diabetes mellitus
     Route: 048
  2. EMPAGLIFLOZIN [Suspect]
     Active Substance: EMPAGLIFLOZIN
     Indication: Diabetes mellitus
     Route: 065
  3. DAPAGLIFLOZIN [Suspect]
     Active Substance: DAPAGLIFLOZIN
     Indication: Diabetes mellitus
     Route: 065
  4. ERTUGLIFLOZIN [Suspect]
     Active Substance: ERTUGLIFLOZIN
     Indication: Diabetes mellitus
     Route: 065

REACTIONS (4)
  - Urinary tract infection [Unknown]
  - Myocardial infarction [Unknown]
  - Transient ischaemic attack [Unknown]
  - Cerebrovascular accident [Unknown]
